FAERS Safety Report 20670545 (Version 2)
Quarter: 2022Q2

REPORT INFORMATION
  Report Type: Spontaneous
  Country: HU (occurrence: HU)
  Receive Date: 20220404
  Receipt Date: 20220412
  Transmission Date: 20220721
  Serious: Yes (Hospitalization, Other)
  Sender: FDA-Public Use
  Company Number: HU-ABBVIE-22K-076-4338568-00

PATIENT
  Age: 63 Year
  Sex: Female

DRUGS (2)
  1. ADALIMUMAB [Suspect]
     Active Substance: ADALIMUMAB
     Indication: Psoriasis
     Route: 058
  2. ADALIMUMAB [Suspect]
     Active Substance: ADALIMUMAB
     Indication: Psoriatic arthropathy

REACTIONS (14)
  - Skin lesion [Unknown]
  - Telangiectasia [Unknown]
  - Skin plaque [Unknown]
  - Gait inability [Unknown]
  - Joint range of motion decreased [Unknown]
  - Oedema peripheral [Unknown]
  - Paraneoplastic dermatomyositis [Unknown]
  - Lung adenocarcinoma [Unknown]
  - Muscular weakness [Unknown]
  - Rash pruritic [Unknown]
  - Arthralgia [Unknown]
  - Rash papular [Unknown]
  - Skin exfoliation [Unknown]
  - Sunburn [Unknown]
